FAERS Safety Report 10982672 (Version 2)
Quarter: 2015Q2

REPORT INFORMATION
  Report Type: Report from Study
  Country: AU (occurrence: AU)
  Receive Date: 20150403
  Receipt Date: 20150403
  Transmission Date: 20150821
  Serious: Yes (Hospitalization)
  Sender: FDA-Public Use
  Company Number: AU-BRISTOL-MYERS SQUIBB COMPANY-20035846

PATIENT
  Age: 52 Year
  Sex: Female
  Weight: 100.3 kg

DRUGS (23)
  1. PARACETAMOL [Concomitant]
     Active Substance: ACETAMINOPHEN
     Dosage: UNK
     Dates: start: 20131230
  2. CHLORVESCENT [Concomitant]
     Active Substance: POTASSIUM CHLORIDE
  3. LOPERAMIDE [Concomitant]
     Active Substance: LOPERAMIDE
  4. NIVOLUMAB [Suspect]
     Active Substance: NIVOLUMAB
     Indication: METASTATIC MALIGNANT MELANOMA
     Dosage: DOSE:1 OR 3 MG/KG,
     Route: 042
     Dates: start: 20131210, end: 20140107
  5. ATACAND [Concomitant]
     Active Substance: CANDESARTAN CILEXETIL
     Dosage: UNK
     Dates: start: 200910
  6. ENDONE [Concomitant]
     Active Substance: OXYCODONE HYDROCHLORIDE
     Dosage: UNK
     Dates: start: 20140106
  7. MIDAZOLAM [Concomitant]
     Active Substance: MIDAZOLAM\MIDAZOLAM HYDROCHLORIDE
  8. FENTANYL. [Concomitant]
     Active Substance: FENTANYL
  9. PROPOFOL. [Concomitant]
     Active Substance: PROPOFOL
  10. SLOW-K [Concomitant]
     Active Substance: POTASSIUM CHLORIDE
  11. TEMAZEPAM. [Concomitant]
     Active Substance: TEMAZEPAM
  12. ONDANSETRON [Concomitant]
     Active Substance: ONDANSETRON
  13. PHOSPHATE-SANDOZ [Concomitant]
  14. IPILIMUMAB [Suspect]
     Active Substance: IPILIMUMAB
     Indication: METASTATIC MALIGNANT MELANOMA
     Route: 042
  15. METOCLOPRAMIDE. [Concomitant]
     Active Substance: METOCLOPRAMIDE
     Dosage: UNK
     Dates: start: 20140106
  16. HEPARIN [Concomitant]
     Active Substance: HEPARIN SODIUM
  17. NILSTAT [Concomitant]
     Active Substance: NYSTATIN
  18. DEXAMETHASONE. [Concomitant]
     Active Substance: DEXAMETHASONE
  19. MAGMIN [Concomitant]
     Active Substance: MAGNESIUM ASPARTATE
  20. PREDNISONE. [Concomitant]
     Active Substance: PREDNISONE
  21. PANTOPRAZOLE [Concomitant]
     Active Substance: PANTOPRAZOLE SODIUM
  22. MAXOLON [Concomitant]
     Active Substance: METOCLOPRAMIDE HYDROCHLORIDE
  23. MOVICOL [Concomitant]
     Active Substance: POLYETHYLENE GLYCOL 3350\POTASSIUM CHLORIDE\SODIUM BICARBONATE\SODIUM CHLORIDE

REACTIONS (4)
  - Hypomagnesaemia [Unknown]
  - Hypophosphataemia [Recovered/Resolved]
  - Hypercalcaemia [Recovered/Resolved]
  - Colitis [Recovered/Resolved]

NARRATIVE: CASE EVENT DATE: 20140113
